FAERS Safety Report 23102267 (Version 1)
Quarter: 2023Q4

REPORT INFORMATION
  Report Type: Spontaneous
  Country: EU (occurrence: EU)
  Receive Date: 20231025
  Receipt Date: 20231025
  Transmission Date: 20240109
  Serious: Yes (Other)
  Sender: FDA-Public Use
  Company Number: EU-ADVANZ PHARMA-202310008919

PATIENT

DRUGS (4)
  1. METHOTREXATE [Suspect]
     Active Substance: METHOTREXATE
     Indication: Rheumatoid arthritis
     Dosage: UNK
  2. CLINDAMYCIN [Suspect]
     Active Substance: CLINDAMYCIN
     Indication: Pneumocystis jirovecii pneumonia
     Dosage: UNK
  3. TRIMETHOPRIM,SULPHAMETHOXAZOLE [Concomitant]
     Indication: Pneumocystis jirovecii pneumonia
     Dosage: UNK
     Route: 042
  4. VANCOMYCIN [Concomitant]
     Active Substance: VANCOMYCIN
     Indication: Pneumocystis jirovecii pneumonia
     Dosage: UNK

REACTIONS (2)
  - Pneumocystis jirovecii infection [Unknown]
  - Product use in unapproved indication [Unknown]
